FAERS Safety Report 12780578 (Version 1)
Quarter: 2016Q3

REPORT INFORMATION
  Report Type: Spontaneous
  Country: FR (occurrence: FR)
  Receive Date: 20160926
  Receipt Date: 20160926
  Transmission Date: 20161109
  Serious: Yes (Death)
  Sender: FDA-Public Use
  Company Number: FR-PFIZER INC-2016441329

PATIENT
  Age: 88 Year
  Sex: Female

DRUGS (16)
  1. SPASFON /00765801/ [Concomitant]
     Active Substance: PHLOROGLUCINOL\1,3,5-TRIMETHOXYBENZENE
  2. AMLOR [Suspect]
     Active Substance: AMLODIPINE BESYLATE
     Indication: TOXICITY TO VARIOUS AGENTS
     Dosage: UNK UNK, SINGLE
     Route: 048
     Dates: start: 20160823, end: 20160823
  3. DOLIPRANE [Concomitant]
     Active Substance: ACETAMINOPHEN
  4. LYRICA [Suspect]
     Active Substance: PREGABALIN
     Indication: INTENTIONAL OVERDOSE
  5. SECTRAL [Suspect]
     Active Substance: ACEBUTOLOL HYDROCHLORIDE
     Indication: TOXICITY TO VARIOUS AGENTS
     Dosage: UNK, SINGLE
     Route: 048
     Dates: start: 20160823, end: 20160823
  6. CRESTOR [Concomitant]
     Active Substance: ROSUVASTATIN CALCIUM
  7. SEROPLEX [Suspect]
     Active Substance: ESCITALOPRAM OXALATE
     Indication: TOXICITY TO VARIOUS AGENTS
     Dosage: UNK, SINGLE
     Route: 048
     Dates: start: 20160823, end: 20160823
  8. ACTISKENAN [Suspect]
     Active Substance: MORPHINE SULFATE
     Indication: TOXICITY TO VARIOUS AGENTS
     Dosage: UNK, SINGLE
     Route: 048
     Dates: start: 20160823, end: 20160823
  9. ACTISKENAN [Suspect]
     Active Substance: MORPHINE SULFATE
     Indication: INTENTIONAL OVERDOSE
  10. PLAVIX [Concomitant]
     Active Substance: CLOPIDOGREL BISULFATE
  11. AMLOR [Suspect]
     Active Substance: AMLODIPINE BESYLATE
     Indication: INTENTIONAL OVERDOSE
  12. PARIET [Concomitant]
     Active Substance: RABEPRAZOLE SODIUM
  13. MOVICOL [Concomitant]
     Active Substance: POLYETHYLENE GLYCOL 3350\POTASSIUM CHLORIDE\SODIUM BICARBONATE\SODIUM CHLORIDE
  14. LYRICA [Suspect]
     Active Substance: PREGABALIN
     Indication: TOXICITY TO VARIOUS AGENTS
     Dosage: UNK, SINGLE
     Route: 048
     Dates: start: 20160823, end: 20160823
  15. SECTRAL [Suspect]
     Active Substance: ACEBUTOLOL HYDROCHLORIDE
     Indication: INTENTIONAL OVERDOSE
  16. SEROPLEX [Suspect]
     Active Substance: ESCITALOPRAM OXALATE
     Indication: INTENTIONAL OVERDOSE

REACTIONS (6)
  - Toxicity to various agents [Fatal]
  - Bradycardia [Fatal]
  - Pneumonia aspiration [Fatal]
  - Intentional overdose [Fatal]
  - Coma [Fatal]
  - Acute respiratory distress syndrome [Fatal]

NARRATIVE: CASE EVENT DATE: 20160823
